FAERS Safety Report 7624587-0 (Version None)
Quarter: 2011Q3

REPORT INFORMATION
  Report Type: 
  Country: None (occurrence: None)
  Receive Date: 20110720
  Receipt Date: 20110711
  Transmission Date: 20111222
  Serious: Yes (Other)
  Sender: FDA-Public Use
  Company Number: US-BAYER-2010-002822

PATIENT
  Age: 42 Year
  Sex: Female
  Weight: 54.422 kg

DRUGS (5)
  1. DARVOCET [Concomitant]
  2. EFFEXOR [Concomitant]
  3. VICODIN [Concomitant]
  4. NAPROXEN SODIUM W/PSEUDOEPHEDRINE HCL [Concomitant]
  5. YAZ [Suspect]
     Indication: PRODUCT USED FOR UNKNOWN INDICATION
     Dosage: UNK
     Dates: start: 20081001, end: 20081201

REACTIONS (3)
  - GALLBLADDER DISORDER [None]
  - PAIN [None]
  - CHOLECYSTITIS CHRONIC [None]
